FAERS Safety Report 5460566-X (Version None)
Quarter: 2007Q3

REPORT INFORMATION
  Report Type: 
  Country: None (occurrence: None)
  Receive Date: 20070919
  Receipt Date: 20070831
  Transmission Date: 20080115
  Serious: Yes (Hospitalization)
  Sender: FDA-Public Use
  Company Number: ES-ELI_LILLY_AND_COMPANY-ES200709000072

PATIENT
  Age: 75 Year
  Sex: Female

DRUGS (2)
  1. ORFIDAL [Concomitant]
     Indication: SLEEP DISORDER
     Dosage: UNK, UNKNOWN
     Route: 065
  2. CYMBALTA [Suspect]
     Indication: AFFECTIVE DISORDER
     Dosage: 480 MG, EIGHT TABLETS OF 60MG
     Route: 048
     Dates: start: 20070101, end: 20070831

REACTIONS (4)
  - ABDOMINAL DISCOMFORT [None]
  - APALLIC SYNDROME [None]
  - INTENTIONAL OVERDOSE [None]
  - LOSS OF CONSCIOUSNESS [None]
